FAERS Safety Report 9727526 (Version 2)
Quarter: 2014Q1

REPORT INFORMATION
  Report Type: Spontaneous
  Country: DE (occurrence: DE)
  Receive Date: 20131203
  Receipt Date: 20140117
  Transmission Date: 20141002
  Serious: Yes (Life-Threatening, Disabling, Other)
  Sender: FDA-Public Use
  Company Number: DE-PFIZER INC-2013338324

PATIENT
  Age: 39 Year
  Sex: Female

DRUGS (5)
  1. SERTRALINE HCL [Suspect]
     Dosage: 25 MG, 1X/DAY
     Route: 048
     Dates: start: 20130804, end: 20130815
  2. SERTRALINE HCL [Suspect]
     Dosage: 50 MG, 1X/DAY
     Route: 048
     Dates: start: 20130816, end: 20130823
  3. ASS [Concomitant]
     Dosage: 25 MG, 1X/DAY
     Route: 048
     Dates: start: 20130629
  4. METOPROLOL [Concomitant]
     Dosage: 50 MG, 1X/DAY
     Route: 048
     Dates: start: 201307
  5. ATOSIL [Concomitant]
     Dosage: 25 MG, 1X/DAY
     Route: 048
     Dates: start: 20130808

REACTIONS (2)
  - Suicidal ideation [Recovering/Resolving]
  - Fear [Recovering/Resolving]
